FAERS Safety Report 20047586 (Version 3)
Quarter: 2021Q4

REPORT INFORMATION
  Report Type: Report from Study
  Country: MX (occurrence: MX)
  Receive Date: 20211109
  Receipt Date: 20211123
  Transmission Date: 20220303
  Serious: Yes (Death)
  Sender: FDA-Public Use
  Company Number: MX-NOVARTISPH-NVSC2021MX255405

PATIENT
  Age: 78 Year
  Sex: Male
  Weight: 68 kg

DRUGS (7)
  1. ELTROMBOPAG OLAMINE [Suspect]
     Active Substance: ELTROMBOPAG OLAMINE
     Indication: Platelet disorder
     Dosage: 1 DF, QD (50 MG)
     Route: 048
     Dates: start: 202106
  2. ELTROMBOPAG OLAMINE [Suspect]
     Active Substance: ELTROMBOPAG OLAMINE
     Indication: Leukaemia
     Dosage: 2 DF, Q24H (FROM TIME TO TIME 2 TABLETS EVERY 24 HOURS)
     Route: 048
     Dates: start: 2021, end: 20211004
  3. ELTROMBOPAG OLAMINE [Suspect]
     Active Substance: ELTROMBOPAG OLAMINE
     Dosage: 2 DF, QD
     Route: 048
     Dates: start: 202107
  4. FILGRASTIM [Suspect]
     Active Substance: FILGRASTIM
     Indication: Platelet disorder
     Dosage: 3 UNK (3 STRENGTH NOT PROVIDED), QW
     Route: 058
     Dates: start: 202106, end: 20211004
  5. PURINETHOL [Concomitant]
     Active Substance: MERCAPTOPURINE
     Indication: Leukaemia
     Dosage: 1 UNK (STRENGTH NOT PROVIDED), BID (IN THE MORNING AND AT NIGHT)
     Route: 048
     Dates: start: 201910, end: 20211004
  6. ARANESP [Concomitant]
     Active Substance: DARBEPOETIN ALFA
     Indication: Platelet disorder
     Dosage: 3 UNK (STRENGTH NOT PROVIDED), QW
     Route: 058
     Dates: start: 202106, end: 20211004
  7. GOSERELIN [Concomitant]
     Active Substance: GOSERELIN
     Indication: Prostate cancer
     Dosage: 1 UNK, Q3MO, ROUTE: UMBILICAL
     Route: 065
     Dates: start: 2017, end: 20210913

REACTIONS (3)
  - Myeloid leukaemia [Fatal]
  - Product use in unapproved indication [Unknown]
  - Incorrect dose administered [Unknown]

NARRATIVE: CASE EVENT DATE: 20211017
